FAERS Safety Report 20288780 (Version 1)
Quarter: 2022Q1

REPORT INFORMATION
  Report Type: Spontaneous
  Country: US (occurrence: US)
  Receive Date: 20220104
  Receipt Date: 20220104
  Transmission Date: 20220424
  Serious: No
  Sender: FDA-Public Use
  Company Number: US-ORGANON-O2112USA002282

PATIENT
  Age: 64 Year
  Sex: Male

DRUGS (5)
  1. REMERON [Suspect]
     Active Substance: MIRTAZAPINE
     Indication: Progressive multifocal leukoencephalopathy
     Dosage: 30 MILLIGRAM, QHS
     Route: 048
     Dates: start: 202104
  2. MEFLOQUINE [Concomitant]
     Active Substance: MEFLOQUINE
     Dosage: UNK
     Dates: start: 20210416
  3. XANAX [Concomitant]
     Active Substance: ALPRAZOLAM
     Indication: Anxiety
     Dosage: 0.5 MILLIGRAM, BID, PRN
     Dates: start: 202104
  4. XANAX [Concomitant]
     Active Substance: ALPRAZOLAM
     Indication: Agitation
  5. HUMAN IMMUNOGLOBULIN G [Concomitant]
     Active Substance: HUMAN IMMUNOGLOBULIN G
     Dosage: 2 GRAM PER KILOGRAM BODY WEIGHT OVER 5 DAYS, 400 MG DAILY
     Dates: start: 20210419

REACTIONS (1)
  - Product use in unapproved indication [Unknown]

NARRATIVE: CASE EVENT DATE: 20210401
